FAERS Safety Report 19165924 (Version 1)
Quarter: 2021Q2

REPORT INFORMATION
  Report Type: Spontaneous
  Country: ID (occurrence: ID)
  Receive Date: 20210421
  Receipt Date: 20210421
  Transmission Date: 20210717
  Serious: Yes (Other)
  Sender: FDA-Public Use
  Company Number: NVSC2021ID082254

PATIENT

DRUGS (2)
  1. KRYXANA [Suspect]
     Active Substance: RIBOCICLIB
     Indication: PRODUCT USED FOR UNKNOWN INDICATION
     Dosage: UNK
     Route: 065
  2. FEMARA [Suspect]
     Active Substance: LETROZOLE
     Indication: PRODUCT USED FOR UNKNOWN INDICATION
     Dosage: UNK
     Route: 065

REACTIONS (4)
  - Aphthous ulcer [Unknown]
  - Palpitations [Unknown]
  - Metastases to lung [Unknown]
  - Swelling [Unknown]
